FAERS Safety Report 5263648-0 (Version None)
Quarter: 2007Q1

REPORT INFORMATION
  Report Type: 
  Country: None (occurrence: None)
  Receive Date: 20061213
  Receipt Date: 20040626
  Transmission Date: 20070707
  Serious: Yes (Hospitalization)
  Sender: FDA-Public Use
  Company Number: 2004UW13821

PATIENT

DRUGS (1)
  1. IRESSA [Suspect]

REACTIONS (3)
  - DIARRHOEA [None]
  - INTERSTITIAL LUNG DISEASE [None]
  - PNEUMONITIS [None]
